FAERS Safety Report 18840355 (Version 1)
Quarter: 2021Q1

REPORT INFORMATION
  Report Type: Spontaneous
  Country: US (occurrence: US)
  Receive Date: 20210203
  Receipt Date: 20210203
  Transmission Date: 20210419
  Serious: Yes (Other)
  Sender: FDA-Public Use
  Company Number: US-DENTSPLY-2021SCDP000029

PATIENT

DRUGS (2)
  1. HYALURONIC ACID [Suspect]
     Active Substance: HYALURONIC ACID
     Indication: SKIN COSMETIC PROCEDURE
     Dosage: VYC?20L (HYALURONIC ACID SOFT TISSUE FILLER WITH LIDOCAINE)
  2. LIDOCAINE. [Suspect]
     Active Substance: LIDOCAINE
     Indication: SKIN COSMETIC PROCEDURE
     Dosage: VYC?20L (HYALURONIC ACID SOFT TISSUE FILLER WITH LIDOCAINE)

REACTIONS (2)
  - Cellulitis [Recovered/Resolved]
  - Injection site inflammation [Recovered/Resolved]
